FAERS Safety Report 7773448-5 (Version None)
Quarter: 2011Q3

REPORT INFORMATION
  Report Type: 
  Country: None (occurrence: None)
  Receive Date: 20110922
  Receipt Date: 20110920
  Transmission Date: 20111222
  Serious: Yes (Hospitalization)
  Sender: FDA-Public Use
  Company Number: US-MERCK-1108USA01133

PATIENT
  Age: 40 Year
  Sex: Female

DRUGS (1)
  1. FOSAMAX [Suspect]
     Indication: OSTEOPENIA
     Route: 048
     Dates: start: 20060913, end: 20091101

REACTIONS (6)
  - DEVICE FAILURE [None]
  - HYPOTHYROIDISM [None]
  - FEMUR FRACTURE [None]
  - OSTEOPOROSIS [None]
  - TOOTH DISORDER [None]
  - FALL [None]
